FAERS Safety Report 17017367 (Version 1)
Quarter: 2019Q4

REPORT INFORMATION
  Report Type: Report from Study
  Country: US (occurrence: US)
  Receive Date: 20191111
  Receipt Date: 20191111
  Transmission Date: 20200122
  Serious: Yes (Hospitalization)
  Sender: FDA-Public Use
  Company Number: US-EISAI MEDICAL RESEARCH-EC-2019-065029

PATIENT
  Age: 82 Year
  Sex: Female

DRUGS (2)
  1. MEGESTROL [Concomitant]
     Active Substance: MEGESTROL
  2. LENVIMA [Suspect]
     Active Substance: LENVATINIB
     Indication: ENDOMETRIAL CANCER
     Route: 048
     Dates: start: 20191031

REACTIONS (3)
  - Decreased appetite [Not Recovered/Not Resolved]
  - Blood urine present [Recovering/Resolving]
  - Fatigue [Not Recovered/Not Resolved]

NARRATIVE: CASE EVENT DATE: 201911
